FAERS Safety Report 6456701-7 (Version None)
Quarter: 2009Q4

REPORT INFORMATION
  Report Type: 
  Country: None (occurrence: None)
  Receive Date: 20091125
  Receipt Date: 20091114
  Transmission Date: 20100525
  Serious: Yes (Hospitalization, Other)
  Sender: FDA-Public Use
  Company Number: ES-CELGENEUS-144-21880-09110015

PATIENT
  Age: 47 Year
  Sex: Male

DRUGS (2)
  1. REVLIMID [Suspect]
     Route: 048
     Dates: start: 20090101, end: 20090101
  2. REVLIMID [Suspect]
     Route: 048
     Dates: start: 20090101, end: 20090101

REACTIONS (3)
  - INFLUENZA [None]
  - PANCYTOPENIA [None]
  - TUMOUR FLARE [None]
